FAERS Safety Report 15699132 (Version 10)
Quarter: 2020Q1

REPORT INFORMATION
  Report Type: Spontaneous
  Country: US (occurrence: US)
  Receive Date: 20181207
  Receipt Date: 20200218
  Transmission Date: 20200409
  Serious: No
  Sender: FDA-Public Use
  Company Number: US-PFIZER INC-2018503931

PATIENT
  Age: 68 Year
  Sex: Female
  Weight: 109 kg

DRUGS (2)
  1. SUTENT [Suspect]
     Active Substance: SUNITINIB MALATE
     Indication: RENAL CANCER METASTATIC
     Dosage: 37.5 MG (12.5 MG, 3 PILLS A DAY), FOR 4 WEEKS AND TWO WEEKS OFF
     Route: 048
  2. SUTENT [Suspect]
     Active Substance: SUNITINIB MALATE
     Dosage: UNK

REACTIONS (2)
  - Product dispensing error [Unknown]
  - Neoplasm progression [Unknown]
